FAERS Safety Report 5076893-4 (Version None)
Quarter: 2006Q3

REPORT INFORMATION
  Report Type: 
  Country: None (occurrence: None)
  Receive Date: 20060810
  Receipt Date: 20060626
  Transmission Date: 20061208
  Serious: Yes (Death, Hospitalization)
  Sender: FDA-Public Use
  Company Number: US-AMGEN-US183514

PATIENT
  Sex: Female
  Weight: 61.3 kg

DRUGS (1)
  1. EPOETIN ALFA [Suspect]
     Indication: DIALYSIS
     Route: 042
     Dates: start: 20050725, end: 20060612

REACTIONS (5)
  - ANOXIC ENCEPHALOPATHY [None]
  - ARTERIOVENOUS FISTULA SITE HAEMORRHAGE [None]
  - CARDIO-RESPIRATORY ARREST [None]
  - COMA [None]
  - HYPERTENSION [None]
